FAERS Safety Report 19195460 (Version 2)
Quarter: 2021Q2

REPORT INFORMATION
  Report Type: Report from Study
  Country: US (occurrence: US)
  Receive Date: 20210429
  Receipt Date: 20210514
  Transmission Date: 20210717
  Serious: Yes (Hospitalization, Other)
  Sender: FDA-Public Use
  Company Number: US-009507513-2104USA001833

PATIENT
  Age: 59 Year
  Sex: Female

DRUGS (2)
  1. PEMBROLIZUMAB. [Suspect]
     Active Substance: PEMBROLIZUMAB
     Indication: NON-SMALL CELL LUNG CANCER
     Dosage: FREQUENCY: EVERY 3 WEEKS (4 TREATMENTS)
     Route: 042
     Dates: start: 20200729
  2. VITAMIN B (UNSPECIFIED) [Concomitant]
     Active Substance: VITAMIN B
     Dosage: UNK

REACTIONS (11)
  - Adverse reaction [Unknown]
  - Pneumonitis [Not Recovered/Not Resolved]
  - Diarrhoea [Unknown]
  - Near death experience [Unknown]
  - Ill-defined disorder [Unknown]
  - Cognitive disorder [Unknown]
  - Illness [Unknown]
  - Asthenia [Unknown]
  - Anaphylactic shock [Unknown]
  - Stent malfunction [Unknown]
  - Anger [Unknown]

NARRATIVE: CASE EVENT DATE: 2021
